FAERS Safety Report 10082960 (Version 1)
Quarter: 2014Q2

REPORT INFORMATION
  Report Type: Spontaneous
  Country: BR (occurrence: BR)
  Receive Date: 20140417
  Receipt Date: 20140417
  Transmission Date: 20141212
  Serious: Yes (Other)
  Sender: FDA-Public Use
  Company Number: BR-ROCHE-1380302

PATIENT
  Sex: Female
  Weight: 71 kg

DRUGS (4)
  1. PEGASYS [Suspect]
     Indication: HEPATITIS C
     Dosage: IN FEB/2013 OR MAR/2013
     Route: 065
  2. IBUPROFEN [Concomitant]
     Route: 065
  3. DIPYRONE [Concomitant]
     Indication: PAIN
     Route: 065
  4. FLUOXETIN [Concomitant]
     Indication: NERVOUS SYSTEM DISORDER
     Route: 065
     Dates: start: 201310

REACTIONS (1)
  - Hepatitis C virus test positive [Not Recovered/Not Resolved]
